FAERS Safety Report 13879523 (Version 1)
Quarter: 2017Q3

REPORT INFORMATION
  Report Type: Spontaneous
  Country: CA (occurrence: CA)
  Receive Date: 20170817
  Receipt Date: 20170817
  Transmission Date: 20171127
  Serious: Yes (Other)
  Sender: FDA-Public Use
  Company Number: CA-TEVA-796220ACC

PATIENT
  Age: 11 Year
  Weight: 30 kg

DRUGS (9)
  1. METHOTREXATE. [Concomitant]
     Active Substance: METHOTREXATE
  2. ASPARAGINASE (E.COLI) [Concomitant]
     Active Substance: ASPARAGINASE
  3. DOXORUBICIN HYDROCHLORIDE INJECTION [Concomitant]
     Active Substance: DOXORUBICIN HYDROCHLORIDE
  4. MERCAPTOPURINE. [Concomitant]
     Active Substance: MERCAPTOPURINE
  5. VINCRISTINE SULFATE. [Concomitant]
     Active Substance: VINCRISTINE SULFATE
  6. DEXAMETHASONE. [Suspect]
     Active Substance: DEXAMETHASONE
     Indication: ACUTE LYMPHOCYTIC LEUKAEMIA
     Route: 048
  7. CYTARABINE INJECTION [Concomitant]
     Active Substance: CYTARABINE
  8. PEGYLATED ASPARAGINASE [Concomitant]
     Active Substance: PEGASPARGASE
  9. HYDROCORTISONE. [Concomitant]
     Active Substance: HYDROCORTISONE

REACTIONS (2)
  - Depressive symptom [Recovering/Resolving]
  - Sleep disorder [Recovering/Resolving]
